FAERS Safety Report 9365851 (Version 1)
Quarter: 2013Q2

REPORT INFORMATION
  Report Type: Spontaneous
  Country: US (occurrence: None)
  Receive Date: 20130624
  Receipt Date: 20130624
  Transmission Date: 20140414
  Serious: No
  Sender: FDA-Public Use
  Company Number: None

PATIENT
  Age: 55 Year
  Sex: Female
  Weight: 78.02 kg

DRUGS (1)
  1. LOSARTAN/ HYDROCHLOROTHIAZIDE [Suspect]
     Indication: HYPERTENSION
     Dosage: 100 - 25  DAILY  ORAL
     Route: 048
     Dates: start: 20120323

REACTIONS (3)
  - Blood pressure inadequately controlled [None]
  - Feeling abnormal [None]
  - Product substitution issue [None]
